FAERS Safety Report 8498155-5 (Version None)
Quarter: 2012Q3

REPORT INFORMATION
  Report Type: 
  Country: None (occurrence: None)
  Receive Date: 20120709
  Receipt Date: 20120620
  Transmission Date: 20120928
  Serious: No
  Sender: FDA-Public Use
  Company Number: US-AMGEN-USASP2012037418

PATIENT
  Age: 51 Year
  Sex: Female
  Weight: 90.703 kg

DRUGS (2)
  1. ENBREL [Suspect]
     Indication: RHEUMATOID ARTHRITIS
     Dosage: 50 MG, QWK
     Route: 058
     Dates: start: 20120501
  2. METHOTREXATE [Concomitant]
     Dosage: UNK

REACTIONS (6)
  - COUGH [None]
  - NASAL CONGESTION [None]
  - BRONCHITIS [None]
  - MALAISE [None]
  - DYSPHONIA [None]
  - ASTHMA [None]
